FAERS Safety Report 7559224-7 (Version None)
Quarter: 2011Q2

REPORT INFORMATION
  Report Type: 
  Country: None (occurrence: None)
  Receive Date: 20110613
  Receipt Date: 20110602
  Transmission Date: 20111010
  Serious: Yes (Death)
  Sender: FDA-Public Use
  Company Number: ACO_22527_2011

PATIENT
  Age: 67 Year
  Sex: Female

DRUGS (2)
  1. AMPYRA [Suspect]
     Indication: PRODUCT USED FOR UNKNOWN INDICATION
     Dosage: 10 MG BY MOUTH EVERY 12 HRS, ORAL
     Route: 048
     Dates: start: 20101101, end: 20110401
  2. BACLOFEN [Concomitant]

REACTIONS (3)
  - NEOPLASM MALIGNANT [None]
  - DIARRHOEA [None]
  - CONSTIPATION [None]
